FAERS Safety Report 16429799 (Version 2)
Quarter: 2019Q2

REPORT INFORMATION
  Report Type: Report from Study
  Country: CA (occurrence: CA)
  Receive Date: 20190614
  Receipt Date: 20190617
  Transmission Date: 20190711
  Serious: Yes (Other)
  Sender: FDA-Public Use
  Company Number: CA-GLAXOSMITHKLINE-CA2019GSK096342

PATIENT
  Age: 37 Year
  Sex: Female
  Weight: 104.76 kg

DRUGS (6)
  1. CONTRAVE [Suspect]
     Active Substance: BUPROPION HYDROCHLORIDE\NALTREXONE HYDROCHLORIDE
     Dosage: 3 DF, QD
     Route: 048
     Dates: start: 20190523, end: 20190529
  2. VENLAFAXINE [Concomitant]
     Active Substance: VENLAFAXINE HYDROCHLORIDE
     Indication: DEPRESSION
     Dosage: 112.5 MG, UNK (37.5 MG,3 IN 1 D)
     Route: 048
  3. CONTRAVE [Suspect]
     Active Substance: BUPROPION HYDROCHLORIDE\NALTREXONE HYDROCHLORIDE
     Indication: WEIGHT DECREASED
     Dosage: 1 DF, QD (1 TAB IN MORNING (AM), 1 TAB IN EVENING (PM) UNTIL 23/MAY/2019)
     Route: 048
     Dates: start: 20190509, end: 20190515
  4. CONTRAVE [Suspect]
     Active Substance: BUPROPION HYDROCHLORIDE\NALTREXONE HYDROCHLORIDE
     Dosage: 1 DF, BID (1 TAB IN MORNING (AM), 1 TAB IN EVENING (PM) UNTIL 23/MAY/2019)
     Route: 048
     Dates: start: 20190516, end: 20190522
  5. CONTRAVE [Suspect]
     Active Substance: BUPROPION HYDROCHLORIDE\NALTREXONE HYDROCHLORIDE
     Dosage: 4 DF, QD
     Route: 048
     Dates: start: 20190530, end: 20190605
  6. BUPROPION HYDROCHLORIDE. [Suspect]
     Active Substance: BUPROPION HYDROCHLORIDE
     Indication: DEPRESSION
     Dosage: 150 MG, QD
     Route: 048

REACTIONS (5)
  - Diarrhoea [Unknown]
  - Dizziness [Unknown]
  - Influenza like illness [Unknown]
  - Contraindicated product administered [Unknown]
  - Dehydration [Unknown]

NARRATIVE: CASE EVENT DATE: 201905
